FAERS Safety Report 20157421 (Version 3)
Quarter: 2022Q1

REPORT INFORMATION
  Report Type: Report from Study
  Country: US (occurrence: US)
  Receive Date: 20211207
  Receipt Date: 20220111
  Transmission Date: 20220423
  Serious: Yes (Other)
  Sender: FDA-Public Use
  Company Number: US-ORGANON-O2112USA000378

PATIENT
  Sex: Female

DRUGS (3)
  1. IMPLANON [Suspect]
     Active Substance: ETONOGESTREL
     Indication: Contraception
     Dosage: 1 IMPLANT , 68 MILIGRAM (3 YEARS AGO)
     Route: 059
     Dates: start: 2018, end: 20211130
  2. IMPLANON [Suspect]
     Active Substance: ETONOGESTREL
     Dosage: 1 IMPLANT, 68 MILLIGRAMS
     Route: 059
     Dates: start: 20211130, end: 20211130
  3. ZYRTEC [Concomitant]
     Active Substance: CETIRIZINE HYDROCHLORIDE
     Dosage: UNK
     Route: 065

REACTIONS (5)
  - Surgery [Unknown]
  - Endometrial ablation [Unknown]
  - Chronic obstructive pulmonary disease [Unknown]
  - Complication of device removal [Recovered/Resolved]
  - Product quality issue [Unknown]

NARRATIVE: CASE EVENT DATE: 20180101
